FAERS Safety Report 13136880 (Version 2)
Quarter: 2017Q1

REPORT INFORMATION
  Report Type: Spontaneous
  Country: US (occurrence: US)
  Receive Date: 20170123
  Receipt Date: 20170125
  Transmission Date: 20170428
  Serious: Yes (Hospitalization, Other)
  Sender: FDA-Public Use
  Company Number: US-MACLEODS PHARMACEUTICALS US LTD-MAC2017004242

PATIENT

DRUGS (3)
  1. RIVAROXABAN [Suspect]
     Active Substance: RIVAROXABAN
     Indication: PULMONARY EMBOLISM
     Dosage: 20 MG, QD
     Route: 065
  2. LOSARTAN POTASSIUM. [Suspect]
     Active Substance: LOSARTAN POTASSIUM
     Indication: HYPERTENSION
     Dosage: 100 MG, QD
     Route: 065
  3. RIVAROXABAN [Suspect]
     Active Substance: RIVAROXABAN
     Indication: DEEP VEIN THROMBOSIS

REACTIONS (8)
  - Cough [Recovering/Resolving]
  - Abdominal wall haematoma [Recovering/Resolving]
  - Early satiety [Recovering/Resolving]
  - Haemoglobin decreased [Recovering/Resolving]
  - Condition aggravated [Recovering/Resolving]
  - Contusion [Recovering/Resolving]
  - Abdominal discomfort [Recovering/Resolving]
  - Abdominal pain [Recovering/Resolving]
